FAERS Safety Report 6097031-5 (Version None)
Quarter: 2009Q1

REPORT INFORMATION
  Report Type: 
  Country: None (occurrence: None)
  Receive Date: 20090227
  Receipt Date: 20090219
  Transmission Date: 20090719
  Serious: Yes (Other)
  Sender: FDA-Public Use
  Company Number: PHHY2008FR30157

PATIENT
  Sex: Female
  Weight: 92 kg

DRUGS (11)
  1. ACLASTA [Suspect]
     Indication: OSTEITIS DEFORMANS
     Dosage: ONCE/SINGLE
     Dates: start: 20080619
  2. UVEDOSE [Suspect]
     Dosage: 1 UNK, ONCE/SINGLE
     Dates: start: 20080618
  3. SKENAN [Suspect]
     Dosage: 10 MG, BID
     Dates: start: 20080619, end: 20080620
  4. ZANIDIP [Concomitant]
     Dosage: 20 MG/DAY
  5. KARDEGIC [Concomitant]
     Dosage: 75 MG/DAY
  6. PLAVIX [Concomitant]
     Dosage: 1 DF/DAY
  7. FUROSEMIDE [Concomitant]
     Dosage: 20 MG/DAY
  8. ESOMEPRAZOLE MAGNESIUM [Concomitant]
     Dosage: 40 MG/DAY
  9. DI-ANTALVIC [Concomitant]
     Dosage: 6 DF/DAY
  10. PIOGLITAZONE [Concomitant]
     Dosage: 50 MG/DAY
  11. FIXICAL VITAMINE D3 [Concomitant]
     Dosage: 1 DF/DAY

REACTIONS (4)
  - ARRHYTHMIA [None]
  - ATRIAL FIBRILLATION [None]
  - PYREXIA [None]
  - TACHYARRHYTHMIA [None]
